FAERS Safety Report 23833350 (Version 4)
Quarter: 2024Q3

REPORT INFORMATION
  Report Type: Report from Study
  Country: CA (occurrence: CA)
  Receive Date: 20240508
  Receipt Date: 20240905
  Transmission Date: 20241017
  Serious: Yes (Other)
  Sender: CSL BEHRING
  Company Number: CA-BEH-2024170366

PATIENT
  Age: 70 Year
  Sex: Male
  Weight: 77.098 kg

DRUGS (22)
  1. HIZENTRA [Suspect]
     Active Substance: HUMAN IMMUNOGLOBULIN G
     Indication: Primary immunodeficiency syndrome
     Dosage: 8 G, QW
     Route: 058
     Dates: start: 20240320
  2. HIZENTRA [Suspect]
     Active Substance: HUMAN IMMUNOGLOBULIN G
     Dosage: UNK
     Route: 058
     Dates: start: 20240327
  3. HIZENTRA [Suspect]
     Active Substance: HUMAN IMMUNOGLOBULIN G
     Dosage: UNK
     Route: 058
     Dates: start: 20240403
  4. HIZENTRA [Suspect]
     Active Substance: HUMAN IMMUNOGLOBULIN G
     Dosage: UNK
     Route: 065
     Dates: start: 20240320
  5. HIZENTRA [Suspect]
     Active Substance: HUMAN IMMUNOGLOBULIN G
     Dosage: UNK
     Route: 065
     Dates: start: 20240424
  6. HIZENTRA [Suspect]
     Active Substance: HUMAN IMMUNOGLOBULIN G
     Dosage: UNK
     Route: 065
     Dates: start: 20240320
  7. HIZENTRA [Suspect]
     Active Substance: HUMAN IMMUNOGLOBULIN G
     Dosage: UNK
     Route: 065
     Dates: start: 20240624
  8. HIZENTRA [Suspect]
     Active Substance: HUMAN IMMUNOGLOBULIN G
     Dosage: 8 G, QW
     Route: 058
     Dates: start: 20240320
  9. CARBAMAZEPINE [Concomitant]
     Active Substance: CARBAMAZEPINE
  10. NUCALA [Concomitant]
     Active Substance: MEPOLIZUMAB
  11. PRIMIDONE [Concomitant]
     Active Substance: PRIMIDONE
  12. GLUCOSAMINE [Concomitant]
     Active Substance: GLUCOSAMINE
  13. RABEPRAZOLE [Concomitant]
     Active Substance: RABEPRAZOLE
  14. ROSUVASTATIN [Concomitant]
     Active Substance: ROSUVASTATIN\ROSUVASTATIN CALCIUM
  15. PREDNISONE [Concomitant]
     Active Substance: PREDNISONE
  16. IRON [Concomitant]
     Active Substance: IRON
  17. ALBUTEROL\IPRATROPIUM [Concomitant]
     Active Substance: ALBUTEROL\IPRATROPIUM
  18. ALBUTEROL [Concomitant]
     Active Substance: ALBUTEROL
  19. ATROVENT [Concomitant]
     Active Substance: IPRATROPIUM BROMIDE
  20. ADVAIR HFA [Concomitant]
     Active Substance: FLUTICASONE PROPIONATE\SALMETEROL XINAFOATE
  21. SPIRIVA [Concomitant]
     Active Substance: TIOTROPIUM BROMIDE MONOHYDRATE
  22. NITROFURANTOIN [Concomitant]
     Active Substance: NITROFURANTOIN
     Indication: Urinary tract infection
     Dosage: UNK
     Route: 065
     Dates: start: 20240308

REACTIONS (18)
  - Blindness [Unknown]
  - Wheezing [Unknown]
  - Pain [Unknown]
  - Infusion site erythema [Unknown]
  - Infusion site pruritus [Unknown]
  - Infusion site urticaria [Unknown]
  - Fatigue [Unknown]
  - Pruritus [Unknown]
  - Infusion site erythema [Recovered/Resolved]
  - Injection site erythema [Unknown]
  - Pain [Unknown]
  - Injection site urticaria [Unknown]
  - Product use complaint [Unknown]
  - Dermatitis contact [Unknown]
  - Injection site erythema [Unknown]
  - Injection site pruritus [Unknown]
  - Injection site erythema [Unknown]
  - Dermatitis contact [Unknown]

NARRATIVE: CASE EVENT DATE: 20240320
